FAERS Safety Report 20125091 (Version 2)
Quarter: 2021Q4

REPORT INFORMATION
  Report Type: Report from Study
  Country: US (occurrence: US)
  Receive Date: 20211129
  Receipt Date: 20211202
  Transmission Date: 20220303
  Serious: Yes (Hospitalization)
  Sender: FDA-Public Use
  Company Number: US-PFIZER INC-202101620152

PATIENT
  Sex: Female
  Weight: 72.7 kg

DRUGS (4)
  1. METHOTREXATE SODIUM [Suspect]
     Active Substance: METHOTREXATE SODIUM
     Indication: Acute lymphocytic leukaemia
     Dosage: 30MG GIVEN IT
     Route: 037
     Dates: start: 20210407
  2. METHOTREXATE SODIUM [Suspect]
     Active Substance: METHOTREXATE SODIUM
     Dosage: 1163.5MG GIVEN IV
     Route: 042
     Dates: start: 20210407
  3. VINCRISTINE SULFATE [Suspect]
     Active Substance: VINCRISTINE SULFATE
     Indication: Acute lymphocytic leukaemia
     Dosage: 8 MG
     Dates: start: 20210407
  4. ONCASPAR [Suspect]
     Active Substance: PEGASPARGASE
     Indication: Acute lymphocytic leukaemia
     Dosage: 7156 UNITS
     Dates: start: 20210407

REACTIONS (1)
  - Neutropenic colitis [Unknown]

NARRATIVE: CASE EVENT DATE: 20211117
